FAERS Safety Report 9690943 (Version 3)
Quarter: 2013Q4

REPORT INFORMATION
  Report Type: Spontaneous
  Country: US (occurrence: US)
  Receive Date: 20131115
  Receipt Date: 20131125
  Transmission Date: 20140711
  Serious: Yes (Other)
  Sender: FDA-Public Use
  Company Number: US-PFIZER INC-2013326280

PATIENT
  Age: 75 Year
  Sex: Female
  Weight: 54.88 kg

DRUGS (4)
  1. XANAX [Suspect]
     Indication: ANTIDEPRESSANT THERAPY
     Dosage: 0.5 MG IN THE MORNING AND 1.5 MG AT NIGHT
  2. PREPARATION H [Suspect]
     Indication: HAEMORRHOIDS
     Dosage: UNK, AS NEEDED
  3. REMERON [Suspect]
     Indication: ANTIDEPRESSANT THERAPY
     Dosage: 30 MG, DAILY
  4. LEXAPRO [Suspect]
     Indication: ANTIDEPRESSANT THERAPY
     Dosage: 25 MG, DAILY

REACTIONS (3)
  - Hip fracture [Unknown]
  - Mental disorder [Unknown]
  - Intentional drug misuse [Unknown]
